FAERS Safety Report 8500236-4 (Version None)
Quarter: 2012Q3

REPORT INFORMATION
  Report Type: 
  Country: None (occurrence: None)
  Receive Date: 20120710
  Receipt Date: 20120707
  Transmission Date: 20120928
  Serious: Yes (Death, Other)
  Sender: FDA-Public Use
  Company Number: PHHY2012IT058700

PATIENT
  Age: 1 Year
  Sex: Male

DRUGS (6)
  1. THIOTEPA [Concomitant]
  2. FLUDARABINE PHOSPHATE [Concomitant]
  3. BUSULFAN [Concomitant]
  4. METHOTREXATE [Concomitant]
  5. ANTI-THYMOCYTE GLOBULIN NOS [Concomitant]
  6. TACROLIMUS [Suspect]
     Indication: IMMUNOSUPPRESSION

REACTIONS (7)
  - STATUS EPILEPTICUS [None]
  - GRAND MAL CONVULSION [None]
  - HYPERTENSION [None]
  - NEUROTOXICITY [None]
  - COMPLICATIONS OF BONE MARROW TRANSPLANT [None]
  - POSTERIOR REVERSIBLE ENCEPHALOPATHY SYNDROME [None]
  - BRAIN OEDEMA [None]
